FAERS Safety Report 20480693 (Version 3)
Quarter: 2022Q1

REPORT INFORMATION
  Report Type: Spontaneous
  Country: DE (occurrence: None)
  Receive Date: 20220216
  Receipt Date: 20220302
  Transmission Date: 20220423
  Serious: Yes (Hospitalization, Other)
  Sender: FDA-Public Use
  Company Number: DE-ROCHE-3024309

PATIENT
  Age: 74 Year
  Sex: Male

DRUGS (26)
  1. VALCYTE [Suspect]
     Active Substance: VALGANCICLOVIR HYDROCHLORIDE
     Indication: Product used for unknown indication
     Route: 048
  2. CANDESARTAN CILEXETIL [Suspect]
     Active Substance: CANDESARTAN CILEXETIL
     Indication: Blood pressure measurement
     Route: 065
  3. PANTOPRAZOLE SODIUM [Suspect]
     Active Substance: PANTOPRAZOLE SODIUM
     Indication: Abdominal pain upper
     Route: 065
  4. CARVEDILOL [Suspect]
     Active Substance: CARVEDILOL
     Indication: Blood pressure measurement
     Route: 065
  5. CHOLECALCIFEROL [Suspect]
     Active Substance: CHOLECALCIFEROL
     Indication: Product used for unknown indication
     Route: 065
  6. CHOLECALCIFEROL [Suspect]
     Active Substance: CHOLECALCIFEROL
     Indication: Product used for unknown indication
     Route: 065
  7. HYGROTON [Suspect]
     Active Substance: CHLORTHALIDONE
     Indication: Blood pressure measurement
     Route: 065
  8. COTRIMOXAZOLE [Suspect]
     Active Substance: SULFAMETHOXAZOLE\TRIMETHOPRIM
     Indication: Product used for unknown indication
     Route: 065
  9. NITRENDIPINE [Suspect]
     Active Substance: NITRENDIPINE
     Indication: Blood pressure measurement
     Route: 065
  10. AMPHOTERICIN B [Suspect]
     Active Substance: AMPHOTERICIN B
     Indication: Product used for unknown indication
     Route: 065
  11. FERROUS GLYCINE SULFATE [Suspect]
     Active Substance: FERROUS GLYCINE SULFATE
     Indication: Product used for unknown indication
     Route: 065
  12. DOXAZOSIN MESYLATE [Suspect]
     Active Substance: DOXAZOSIN MESYLATE
     Indication: Blood pressure measurement
     Route: 065
  13. MYFORTIC [Suspect]
     Active Substance: MYCOPHENOLATE SODIUM
     Indication: Transplant
     Route: 065
  14. SODIUM BICARBONATE [Suspect]
     Active Substance: SODIUM BICARBONATE
     Indication: Product used for unknown indication
     Route: 065
  15. TACROLIMUS [Suspect]
     Active Substance: TACROLIMUS
     Indication: Transplant
     Route: 065
  16. PROGRAF [Suspect]
     Active Substance: TACROLIMUS
     Indication: Transplant
     Route: 065
  17. FUROSEMIDE [Suspect]
     Active Substance: FUROSEMIDE
     Indication: Fluid retention
     Route: 065
  18. ARANESP [Suspect]
     Active Substance: DARBEPOETIN ALFA
     Indication: Product used for unknown indication
     Route: 065
  19. MARCUMAR [Suspect]
     Active Substance: PHENPROCOUMON
     Indication: Anticoagulant therapy
     Route: 048
  20. MARCUMAR [Suspect]
     Active Substance: PHENPROCOUMON
     Indication: Cardiac failure
  21. FLUVASTATIN SODIUM [Suspect]
     Active Substance: FLUVASTATIN SODIUM
     Indication: Blood cholesterol
     Route: 065
  22. CALCIUM CARBONATE\CHOLECALCIFEROL [Suspect]
     Active Substance: CALCIUM CARBONATE\CHOLECALCIFEROL
     Indication: Product used for unknown indication
     Route: 065
  23. TAMSULOSIN HYDROCHLORIDE [Suspect]
     Active Substance: TAMSULOSIN HYDROCHLORIDE
     Indication: Prostatic disorder
     Route: 065
  24. TORSEMIDE [Suspect]
     Active Substance: TORSEMIDE
     Indication: Product used for unknown indication
     Route: 065
  25. DIGITOXIN [Suspect]
     Active Substance: DIGITOXIN
     Indication: Cardiac disorder
     Dosage: QD(NOT ON SUNDAYS)
     Route: 065
  26. MINOXIDIL [Suspect]
     Active Substance: MINOXIDIL
     Indication: Blood pressure measurement
     Route: 065

REACTIONS (61)
  - Blood pressure increased [Recovered/Resolved]
  - Medication error [Unknown]
  - Overdose [Unknown]
  - Metabolic acidosis [Unknown]
  - Dermal cyst [Unknown]
  - Restless legs syndrome [Unknown]
  - Rectal prolapse [Unknown]
  - Atrial fibrillation [Unknown]
  - COVID-19 [Unknown]
  - Thrombosis [Unknown]
  - Delayed graft function [Unknown]
  - Anastomotic haemorrhage [Unknown]
  - Activated partial thromboplastin time prolonged [Unknown]
  - C-reactive protein increased [Unknown]
  - Basal cell carcinoma [Unknown]
  - Squamous cell carcinoma of skin [Recovered/Resolved]
  - Aortic dilatation [Unknown]
  - Chronic kidney disease [Unknown]
  - Atrial fibrillation [Unknown]
  - Blood potassium increased [Unknown]
  - Haemoglobin decreased [Recovered/Resolved]
  - Mean cell volume increased [Recovered/Resolved]
  - Vitamin D decreased [Recovered/Resolved]
  - Red blood cell count decreased [Recovered/Resolved]
  - Glycosylated haemoglobin increased [Unknown]
  - Diverticulum intestinal [Unknown]
  - Large intestine polyp [Unknown]
  - Pulmonary hypertension [Unknown]
  - Renal cyst [Unknown]
  - Renal cyst haemorrhage [Unknown]
  - Aortic arteriosclerosis [Unknown]
  - Carotid arteriosclerosis [Unknown]
  - Bradycardia [Unknown]
  - Vena cava injury [Unknown]
  - Intraductal papillary mucinous neoplasm [Unknown]
  - Swelling [Unknown]
  - Complications of transplanted kidney [Unknown]
  - Spinal osteoarthritis [Unknown]
  - Hepatic steatosis [Unknown]
  - Left ventricular hypertrophy [Unknown]
  - Spinal stenosis [Unknown]
  - Presyncope [Unknown]
  - Oedema peripheral [Unknown]
  - Atrioventricular block first degree [Unknown]
  - Vertigo [Unknown]
  - Benign prostatic hyperplasia [Unknown]
  - Hepatosplenomegaly [Unknown]
  - Gastrooesophageal reflux disease [Unknown]
  - Hyperparathyroidism secondary [Unknown]
  - Haemorrhoids [Unknown]
  - Actinic keratosis [Recovered/Resolved]
  - Myalgia [Unknown]
  - Fear [Unknown]
  - Insomnia [Unknown]
  - Headache [Unknown]
  - Swelling of eyelid [Unknown]
  - Restlessness [Unknown]
  - Dizziness [Unknown]
  - Swelling face [Unknown]
  - Pancreatic cyst [Unknown]
  - Diverticulum intestinal [Unknown]

NARRATIVE: CASE EVENT DATE: 20130401
